FAERS Safety Report 4795252-2 (Version None)
Quarter: 2005Q4

REPORT INFORMATION
  Report Type: 
  Country: None (occurrence: None)
  Receive Date: 20051012
  Receipt Date: 20040712
  Transmission Date: 20060501
  Serious: Yes (Life-Threatening, Hospitalization)
  Sender: FDA-Public Use
  Company Number: PHHO2004IE09920

PATIENT
  Age: 62 Year
  Sex: Male
  Weight: 137 kg

DRUGS (14)
  1. VALSARTAN [Suspect]
     Indication: CARDIOVASCULAR DISORDER
     Dosage: LEVEL 1
     Route: 048
     Dates: start: 20030320
  2. VALSARTAN [Suspect]
     Dosage: LEVEL 2
     Route: 048
  3. CARDURA [Concomitant]
     Indication: HYPERTENSION
  4. ALLOPURINOL [Concomitant]
     Indication: GOUT
  5. NATEGLINIDE [Suspect]
     Indication: GLUCOSE TOLERANCE IMPAIRED
     Dosage: LEVEL 1
     Route: 048
     Dates: start: 20030320
  6. NATEGLINIDE [Suspect]
     Dosage: LEVEL 2
     Route: 048
  7. THEOPHYLLINE [Concomitant]
  8. ZOCOR [Concomitant]
  9. AMLODIPINE [Concomitant]
  10. FRUSEMIDE [Concomitant]
  11. LISINOPRIL [Concomitant]
  12. AMIODARONE [Concomitant]
  13. ASPIRIN [Concomitant]
  14. COMBIVENT [Concomitant]

REACTIONS (3)
  - ABDOMINAL PAIN UPPER [None]
  - ANGINA PECTORIS [None]
  - CHEST DISCOMFORT [None]
